FAERS Safety Report 8909295 (Version 2)
Quarter: 2012Q4

REPORT INFORMATION
  Report Type: Spontaneous
  Country: US (occurrence: None)
  Receive Date: 20121102
  Receipt Date: 20121108
  Transmission Date: 20130627
  Serious: Yes (Death)
  Sender: FDA-Public Use
  Company Number: 2012PROUSA02155

PATIENT
  Age: 65 Year
  Sex: Male

DRUGS (8)
  1. PROVENGE (SIPULEUCEL-T) SUSPENSION, 250ML [Suspect]
     Route: 042
     Dates: start: 20121011, end: 20121011
  2. ALTACE (RAMIPRIL) [Concomitant]
  3. TOPROL (METOPROLOL SUCCINATE) [Concomitant]
  4. PLAQUENIL SULFATE (HYDROXYCHLOROQUINE SULFATE) [Concomitant]
  5. COUMADIN (WARFARIN SODIUM) [Concomitant]
  6. CELEXA (CITALOPRAM HYDROBROMIDE) [Concomitant]
  7. KETOCONAZOLE (KETOCONAZOLE) [Concomitant]
  8. CORTISONE ACETATE [Concomitant]

REACTIONS (3)
  - Cardiac arrest [None]
  - Sudden death [None]
  - Arrhythmia [None]
